FAERS Safety Report 20877597 (Version 1)
Quarter: 2022Q2

REPORT INFORMATION
  Report Type: Other
  Country: CA (occurrence: None)
  Receive Date: 20220526
  Receipt Date: 20220526
  Transmission Date: 20220720
  Serious: No
  Sender: FDA-Public Use
  Company Number: CA-ROCHE-2801675

PATIENT
  Age: 41 Year
  Sex: Female

DRUGS (13)
  1. OCREVUS [Suspect]
     Active Substance: OCRELIZUMAB
     Indication: Relapsing-remitting multiple sclerosis
     Dosage: 300 MG AT DAY 0 AND 14, THEN 600 MG EVERY 6 MONTH
     Route: 042
     Dates: start: 20210315
  2. OCREVUS [Suspect]
     Active Substance: OCRELIZUMAB
     Dosage: 600 MG EVERY 6 MONTH
     Route: 042
  3. GABAPENTIN [Suspect]
     Active Substance: GABAPENTIN
     Indication: Product used for unknown indication
     Route: 065
  4. RANITIDINE [Concomitant]
     Active Substance: RANITIDINE
  5. AVENTYL [Concomitant]
     Active Substance: NORTRIPTYLINE HYDROCHLORIDE
  6. CYCLOBENZAPRINE [Concomitant]
     Active Substance: CYCLOBENZAPRINE
  7. CELEBREX [Concomitant]
     Active Substance: CELECOXIB
  8. MYRBETRIQ [Concomitant]
     Active Substance: MIRABEGRON
  9. DEXILANT [Concomitant]
     Active Substance: DEXLANSOPRAZOLE
  10. AMLODIPINE [Concomitant]
     Active Substance: AMLODIPINE BESYLATE
  11. IRON [Concomitant]
     Active Substance: IRON
  12. FLUTICASONE FUROATE [Concomitant]
     Active Substance: FLUTICASONE FUROATE
  13. GABAPENTIN [Concomitant]
     Active Substance: GABAPENTIN

REACTIONS (3)
  - Infusion related reaction [Recovered/Resolved]
  - Cholelithiasis [Unknown]
  - Somnolence [Unknown]

NARRATIVE: CASE EVENT DATE: 20210315
